FAERS Safety Report 9108496 (Version 4)
Quarter: 2013Q2

REPORT INFORMATION
  Report Type: Spontaneous
  Country: FR (occurrence: FR)
  Receive Date: 20130222
  Receipt Date: 20130419
  Transmission Date: 20140414
  Serious: Yes (Hospitalization, Other)
  Sender: FDA-Public Use
  Company Number: FR-B.I. PHARMACEUTICALS,INC./RIDGEFIELD-2013-FF-00467FF

PATIENT
  Age: 72 Year
  Sex: Female
  Weight: 52 kg

DRUGS (7)
  1. PRADAXA [Suspect]
     Indication: KNEE ARTHROPLASTY
     Dosage: 150 MG
     Route: 048
     Dates: start: 20130110, end: 20130122
  2. PRADAXA [Suspect]
     Indication: THROMBOSIS PROPHYLAXIS
  3. APROVEL [Concomitant]
     Indication: HYPERTENSION
     Dosage: 150 MG
     Route: 048
  4. TAHOR [Concomitant]
     Indication: DYSLIPIDAEMIA
     Dosage: 10 MG
     Route: 048
  5. PARACETAMOL [Concomitant]
     Indication: ANALGESIC THERAPY
     Dosage: ON DEMAND
     Route: 048
     Dates: start: 20130114
  6. DAFALGAN [Concomitant]
     Indication: ANALGESIC THERAPY
     Dosage: ON DEMAND
     Route: 048
     Dates: start: 20130114
  7. CODEINE [Concomitant]
     Indication: ANALGESIC THERAPY
     Dosage: ON DEMAND
     Route: 048
     Dates: start: 20130114

REACTIONS (2)
  - Pulmonary embolism [Recovered/Resolved]
  - Phlebitis [Unknown]
